FAERS Safety Report 7021910-5 (Version None)
Quarter: 2010Q3

REPORT INFORMATION
  Report Type: 
  Country: None (occurrence: None)
  Receive Date: 20100930
  Receipt Date: 20100920
  Transmission Date: 20110219
  Serious: Yes (Hospitalization, Other)
  Sender: FDA-Public Use
  Company Number: US-US-EMD SERONO, INC.-232652J09USA

PATIENT
  Sex: Female
  Weight: 98 kg

DRUGS (6)
  1. REBIF [Suspect]
     Indication: MULTIPLE SCLEROSIS
     Route: 058
     Dates: start: 20090601, end: 20090909
  2. REBIF [Suspect]
     Dates: start: 20100601
  3. PROZAC [Concomitant]
     Indication: DEPRESSION
     Route: 065
     Dates: end: 20090901
  4. BACLOFEN [Concomitant]
     Route: 065
     Dates: end: 20090901
  5. TIZANIDINE HCL [Concomitant]
     Route: 065
  6. SYNTHROID [Concomitant]
     Indication: HYPOTHYROIDISM
     Dates: start: 20020101

REACTIONS (7)
  - DRUG EXPOSURE DURING PREGNANCY [None]
  - LUNG NEOPLASM [None]
  - MULTIPLE SCLEROSIS [None]
  - NEPHROLITHIASIS [None]
  - PREMATURE LABOUR [None]
  - PREMATURE RUPTURE OF MEMBRANES [None]
  - THROMBOSIS [None]
